FAERS Safety Report 25962006 (Version 1)
Quarter: 2025Q4

REPORT INFORMATION
  Report Type: Spontaneous
  Country: US (occurrence: US)
  Receive Date: 20251027
  Receipt Date: 20251027
  Transmission Date: 20260117
  Serious: No
  Sender: MYLAN
  Company Number: US-MYLANLABS-2025M1084923

PATIENT
  Sex: Female
  Weight: 77.11 kg

DRUGS (4)
  1. WIXELA INHUB [Suspect]
     Active Substance: FLUTICASONE PROPIONATE\SALMETEROL XINAFOATE
     Indication: Asthma exercise induced
     Dosage: 100 PER 50 MICROGRAM, PRN (ONCE A DAY OR TWO AS NEEDED)
  2. WIXELA INHUB [Suspect]
     Active Substance: FLUTICASONE PROPIONATE\SALMETEROL XINAFOATE
     Indication: Asthma
     Dosage: 100 PER 50 MICROGRAM, PRN (ONCE A DAY OR TWO AS NEEDED)
     Route: 055
  3. WIXELA INHUB [Suspect]
     Active Substance: FLUTICASONE PROPIONATE\SALMETEROL XINAFOATE
     Dosage: 100 PER 50 MICROGRAM, PRN (ONCE A DAY OR TWO AS NEEDED)
     Route: 055
  4. WIXELA INHUB [Suspect]
     Active Substance: FLUTICASONE PROPIONATE\SALMETEROL XINAFOATE
     Dosage: 100 PER 50 MICROGRAM, PRN (ONCE A DAY OR TWO AS NEEDED)

REACTIONS (3)
  - Drug ineffective [Unknown]
  - Product communication issue [Unknown]
  - Inappropriate schedule of product administration [Unknown]
